FAERS Safety Report 4806423-0 (Version None)
Quarter: 2005Q4

REPORT INFORMATION
  Report Type: 
  Country: None (occurrence: None)
  Receive Date: 20051021
  Receipt Date: 20050914
  Transmission Date: 20060501
  Serious: Yes (Other)
  Sender: FDA-Public Use
  Company Number: PHBS2005JP13605

PATIENT
  Age: 5 Year
  Sex: Male

DRUGS (4)
  1. ZADITEN [Suspect]
     Indication: RHINITIS ALLERGIC
     Dosage: UNK, UNK
     Route: 048
     Dates: start: 20050601, end: 20050101
  2. ZADITEN [Suspect]
     Route: 048
     Dates: start: 20050912, end: 20050914
  3. MUCODYNE [Concomitant]
     Dosage: 1.8 G/DAY
     Route: 048
     Dates: start: 20050912
  4. ONON [Concomitant]
     Dosage: 1.4 G/DAY
     Route: 048
     Dates: start: 20050912

REACTIONS (2)
  - EYE MOVEMENT DISORDER [None]
  - LOSS OF CONSCIOUSNESS [None]
